FAERS Safety Report 8992659 (Version 1)
Quarter: 2013Q1

REPORT INFORMATION
  Report Type: Spontaneous
  Country: DE (occurrence: DE)
  Receive Date: 20130101
  Receipt Date: 20130101
  Transmission Date: 20140127
  Serious: Yes (Congenital Anomaly, Other)
  Sender: FDA-Public Use
  Company Number: DE-TEVA-376648GER

PATIENT
  Age: 0 Year
  Sex: Male

DRUGS (3)
  1. MORPHINE [Suspect]
     Route: 064
  2. ADALAT [Concomitant]
     Route: 064
  3. METHYLDOPA [Concomitant]
     Route: 064

REACTIONS (8)
  - Neonatal respiratory distress syndrome [Recovered/Resolved]
  - Apnoea neonatal [Recovered/Resolved]
  - Right aortic arch [Not Recovered/Not Resolved]
  - Ventricular septal defect [Unknown]
  - Bradycardia neonatal [Recovered/Resolved]
  - Patent ductus arteriosus [Unknown]
  - Atrial septal defect [Unknown]
  - Cryptorchism [Unknown]
